FAERS Safety Report 5638637-4 (Version None)
Quarter: 2008Q1

REPORT INFORMATION
  Report Type: 
  Country: None (occurrence: None)
  Receive Date: 20080226
  Receipt Date: 20070720
  Transmission Date: 20080703
  Serious: Yes (Hospitalization)
  Sender: FDA-Public Use
  Company Number: A0665405A

PATIENT
  Age: 55 Year
  Sex: Female

DRUGS (5)
  1. IMITREX [Suspect]
     Indication: MIGRAINE
     Dosage: 100MG AS REQUIRED
     Route: 058
     Dates: start: 19920101, end: 20020101
  2. IMITREX [Suspect]
     Dosage: 100MG AS REQUIRED
     Route: 048
     Dates: start: 20020101
  3. KEPPRA [Concomitant]
  4. XANAX [Concomitant]
  5. SYNTHROID [Concomitant]

REACTIONS (3)
  - CHEST DISCOMFORT [None]
  - CONVULSION [None]
  - INSOMNIA [None]
